FAERS Safety Report 6703830-6 (Version None)
Quarter: 2010Q2

REPORT INFORMATION
  Report Type: 
  Country: None (occurrence: None)
  Receive Date: 20100428
  Receipt Date: 20100419
  Transmission Date: 20101027
  Serious: Yes (Other)
  Sender: FDA-Public Use
  Company Number: SPV1-2010-00689

PATIENT
  Age: 62 Year
  Sex: Female

DRUGS (3)
  1. XAGRID (ANAGRELIDE HYDROCHLORIDE) CAPSULE [Suspect]
     Indication: ESSENTIAL THROMBOCYTHAEMIA
     Dates: start: 20090501
  2. ATARAX [Concomitant]
  3. .. [Concomitant]

REACTIONS (2)
  - GINGIVAL BLEEDING [None]
  - MYELOFIBROSIS [None]
